FAERS Safety Report 23521774 (Version 1)
Quarter: 2024Q1

REPORT INFORMATION
  Report Type: Spontaneous
  Country: US (occurrence: US)
  Receive Date: 20240214
  Receipt Date: 20240214
  Transmission Date: 20240410
  Serious: Yes (Life-Threatening, Other)
  Sender: FDA-Public Use
  Company Number: US-002147023-NVSC2024US030696

PATIENT
  Age: 25 Year
  Sex: Male

DRUGS (1)
  1. KYMRIAH [Suspect]
     Active Substance: TISAGENLECLEUCEL
     Indication: Acute lymphocytic leukaemia recurrent
     Dosage: 1 DOSAGE FORM, ONCE/SINGLE, (1.0 X 10^8 CAR-POSITIVE VIABLE T CELLS)
     Route: 042
     Dates: start: 2023, end: 2023

REACTIONS (1)
  - Acute lymphocytic leukaemia recurrent [Not Recovered/Not Resolved]

NARRATIVE: CASE EVENT DATE: 20230101
